FAERS Safety Report 7406526-0 (Version None)
Quarter: 2011Q2

REPORT INFORMATION
  Report Type: 
  Country: None (occurrence: None)
  Receive Date: 20110401
  Receipt Date: 20110316
  Transmission Date: 20111010
  Serious: Yes (Hospitalization, Other)
  Sender: FDA-Public Use
  Company Number: 2011P1004987

PATIENT
  Age: 60 Year
  Sex: Female
  Weight: 62.5964 kg

DRUGS (11)
  1. FOLIC ACID [Concomitant]
  2. CITRACAL [Concomitant]
  3. MAGNESIUM [Concomitant]
  4. SPIRIVA [Concomitant]
  5. PRILOSEC [Concomitant]
  6. VITAMIN D [Concomitant]
  7. HYDROXYUREA [Concomitant]
  8. WARFARIN SODIUM [Suspect]
     Indication: THROMBOSIS
     Dosage: 2.5 MG;PER PT/INR;PO ; 5 MG;PER PT/INR;PO
     Route: 048
  9. WARFARIN SODIUM [Suspect]
     Indication: THROMBOSIS
     Dosage: 2.5 MG;PER PT/INR;PO ; 5 MG;PER PT/INR;PO
     Route: 048
  10. FORTICAL [Concomitant]
  11. ASPIRIN [Concomitant]

REACTIONS (4)
  - BLUE TOE SYNDROME [None]
  - THROMBOSIS [None]
  - DRUG DOSE OMISSION [None]
  - OROPHARYNGEAL PAIN [None]
